FAERS Safety Report 5725627-6 (Version None)
Quarter: 2008Q2

REPORT INFORMATION
  Report Type: 
  Country: None (occurrence: None)
  Receive Date: 20080501
  Receipt Date: 20080408
  Transmission Date: 20081010
  Serious: No
  Sender: FDA-Public Use
  Company Number: US-BOEHRINGER INGELHEIM GMBH, GERMANY-2008-BP-00679BP

PATIENT
  Age: 60 Year
  Sex: Female

DRUGS (8)
  1. MICARDIS HCT [Suspect]
     Indication: HYPERTENSION
     Route: 048
     Dates: start: 20070201
  2. ADVAIR HFA [Concomitant]
  3. SPIRIVA [Concomitant]
  4. LISINOPRIL [Concomitant]
  5. CADUET [Concomitant]
  6. TRANXENE [Concomitant]
  7. ASPIRIN [Concomitant]
  8. METFORMIN HCL [Concomitant]

REACTIONS (1)
  - SKIN LACERATION [None]
